FAERS Safety Report 25616594 (Version 1)
Quarter: 2025Q3

REPORT INFORMATION
  Report Type: Spontaneous
  Country: US (occurrence: US)
  Receive Date: 20250729
  Receipt Date: 20250729
  Transmission Date: 20251020
  Serious: Yes (Hospitalization)
  Sender: BIOGEN
  Company Number: US-BIOGEN-2025BI01318086

PATIENT
  Age: 33 Year
  Sex: Female

DRUGS (1)
  1. ZURZUVAE [Suspect]
     Active Substance: ZURANOLONE
     Indication: Perinatal depression
     Route: 050
     Dates: start: 20250617

REACTIONS (4)
  - Suicidal ideation [Unknown]
  - Nausea [Unknown]
  - Dizziness [Unknown]
  - Panic attack [Unknown]

NARRATIVE: CASE EVENT DATE: 20250617
